FAERS Safety Report 4448279-4 (Version None)
Quarter: 2004Q3

REPORT INFORMATION
  Report Type: 
  Country: None (occurrence: None)
  Receive Date: 20040910
  Receipt Date: 20040906
  Transmission Date: 20050211
  Serious: Yes (Death)
  Sender: FDA-Public Use
  Company Number: 8794

PATIENT
  Age: 54 Year
  Sex: Male

DRUGS (4)
  1. CYTARABINE [Suspect]
     Indication: ACUTE MYELOID LEUKAEMIA RECURRENT
     Dosage: NI
     Dates: start: 20021001
  2. FLUDARABINE PHOSPHATE [Suspect]
     Indication: ACUTE MYELOID LEUKAEMIA RECURRENT
     Dosage: NI
     Dates: start: 20021001
  3. RETINOIC ACID [Suspect]
     Indication: ACUTE MYELOID LEUKAEMIA RECURRENT
     Dosage: NI
     Dates: start: 20021001
  4. VORICONAZOLE [Suspect]
     Indication: INFECTION PROPHYLAXIS
     Dosage: NI
     Dates: start: 20020101

REACTIONS (7)
  - ALVEOLAR PROTEINOSIS [None]
  - CARDIAC TAMPONADE [None]
  - NEUROPATHY PERIPHERAL [None]
  - PERICARDITIS [None]
  - PLEURAL EFFUSION [None]
  - PULMONARY MYCOSIS [None]
  - PYREXIA [None]
